FAERS Safety Report 25787105 (Version 2)
Quarter: 2025Q3

REPORT INFORMATION
  Report Type: Report from Study
  Country: US (occurrence: US)
  Receive Date: 20250910
  Receipt Date: 20250926
  Transmission Date: 20251021
  Serious: Yes (Death, Hospitalization)
  Sender: BAYER HEALTHCARE PHARMACEUTICALS INC.
  Company Number: US-BAYER-2025A120000

PATIENT
  Age: 43 Year
  Sex: Female

DRUGS (1)
  1. ADEMPAS [Suspect]
     Active Substance: RIOCIGUAT
     Indication: Pulmonary arterial hypertension
     Dates: start: 20250801, end: 20250826

REACTIONS (3)
  - Cor pulmonale [Fatal]
  - Septic shock [Fatal]
  - Pulmonary arterial hypertension [None]
